FAERS Safety Report 8161174-2 (Version None)
Quarter: 2012Q1

REPORT INFORMATION
  Report Type: 
  Country: None (occurrence: None)
  Receive Date: 20120103
  Receipt Date: 20111116
  Transmission Date: 20120608
  Serious: No
  Sender: FDA-Public Use
  Company Number: AE-2011-003514

PATIENT
  Age: 47 Year
  Sex: Male
  Weight: 69.8539 kg

DRUGS (6)
  1. RIBAVIRIN [Concomitant]
  2. INCIVEK [Suspect]
     Dosage: 2250 MG (750 MG, 1 IN 8 HR), ORAL
     Route: 048
     Dates: start: 20111005
  3. LAMICTAL [Concomitant]
  4. PEGINTERFERON (PEGINTERFERON ALFA-2A) [Concomitant]
  5. PHENERGAN HCL [Concomitant]
  6. METFORMIN HCL [Concomitant]

REACTIONS (5)
  - PRURITUS [None]
  - NAUSEA [None]
  - WEIGHT DECREASED [None]
  - ABDOMINAL MASS [None]
  - ABDOMINAL PAIN UPPER [None]
